FAERS Safety Report 17634391 (Version 2)
Quarter: 2020Q2

REPORT INFORMATION
  Report Type: Report from Study
  Country: KR (occurrence: KR)
  Receive Date: 20200407
  Receipt Date: 20200413
  Transmission Date: 20200713
  Serious: Yes (Death, Hospitalization)
  Sender: FDA-Public Use
  Company Number: KR-CELLTRION INC.-2019KR023091

PATIENT

DRUGS (19)
  1. TRUXIMA [Suspect]
     Active Substance: RITUXIMAB-ABBS
     Dosage: 5TH CYCLE
     Route: 042
     Dates: start: 20191010
  2. MTX [METHOTREXATE] [Suspect]
     Active Substance: METHOTREXATE SODIUM
     Dosage: 3000 MG/M2 + 5% DW 500 OVER 3 HOURS (INDUCTION CHEMOTHERAPY EVERY 2 WEEKS)
     Route: 042
  3. ACTOS [Concomitant]
     Active Substance: PIOGLITAZONE HYDROCHLORIDE
     Indication: DIABETES MELLITUS
     Dosage: 15 MG (FREQUENCY: 1)
     Route: 048
  4. HINECOL [Concomitant]
     Active Substance: BETHANECHOL CHLORIDE
     Indication: PROPHYLAXIS
     Dosage: 25 MG (FREQUENCY: 3)
     Route: 048
  5. NEURONTIN [Concomitant]
     Active Substance: GABAPENTIN
     Indication: CEREBRAL INFARCTION
     Dosage: 100 MG (FREQUENCY: 1)
     Route: 048
  6. TRUXIMA [Suspect]
     Active Substance: RITUXIMAB-ABBS
     Indication: CENTRAL NERVOUS SYSTEM LYMPHOMA
     Dosage: 845 MG, QD, DAY 1 (500 MG/M2 + 5%DW 500 ML IVF)  (INDUCTION CHEMOTHERAPY EVERY 2 WEEKS)
     Route: 042
     Dates: start: 20190708, end: 20191205
  7. TRUXIMA [Suspect]
     Active Substance: RITUXIMAB-ABBS
     Dosage: 2ND CYCLE
     Route: 042
     Dates: start: 20190807
  8. TRUXIMA [Suspect]
     Active Substance: RITUXIMAB-ABBS
     Dosage: 3RD CYCLE
     Route: 042
     Dates: start: 20190823
  9. BONALING A [Concomitant]
     Indication: CEREBRAL INFARCTION
     Dosage: 25 MG (FREQUENCY: 1)
     Route: 048
  10. CYTARABINE. [Concomitant]
     Active Substance: CYTARABINE
     Indication: CHEMOTHERAPY
     Dosage: 3000 MG/M2 + 5%DW 200 ML IVF OVER 2 HRS (CONSOLIDATION CHEMOTHERAPY EVERY 4 WEEKS)
     Route: 042
  11. TRUXIMA [Suspect]
     Active Substance: RITUXIMAB-ABBS
     Dosage: 4TH CYCLE
     Route: 042
     Dates: start: 20190918
  12. NORVASC [Concomitant]
     Active Substance: AMLODIPINE BESYLATE
     Indication: HYPERTENSION
     Dosage: 5 MG (FREQUENCY: 1)
     Route: 048
  13. MTX [METHOTREXATE] [Suspect]
     Active Substance: METHOTREXATE SODIUM
     Indication: CHEMOTHERAPY
     Dosage: 5915 MG, QD ON DAY 2 AND DAY 3 (INDUCTION CHEMOTHERAPY EVERY 2 WEEKS)
     Route: 042
  14. MTX [METHOTREXATE] [Suspect]
     Active Substance: METHOTREXATE SODIUM
     Dosage: 500 MG/M2 + 5% DW 200 ML OVER 15 MINUTES (INDUCTION CHEMOTHERAPY EVERY 2 WEEKS)
     Route: 042
  15. DIAMICRON MR [Concomitant]
     Active Substance: GLICLAZIDE
     Indication: DIABETES MELLITUS
     Dosage: 30 MG (FREQUENCY: 1)
     Route: 048
  16. TRAJENTA [Concomitant]
     Active Substance: LINAGLIPTIN
     Indication: DIABETES MELLITUS
     Dosage: 5 MG (FREQUENCY: 1)
     Route: 048
  17. TAMS [Concomitant]
     Indication: PROPHYLAXIS
     Dosage: 0.2 MG, (FREQUENCY: 1)
     Route: 048
  18. KEPPRA [Concomitant]
     Active Substance: LEVETIRACETAM
     Indication: CEREBRAL INFARCTION
     Dosage: 250 MG (FREQUENCY: 2)
     Route: 048
  19. PLAVIX [Concomitant]
     Active Substance: CLOPIDOGREL BISULFATE
     Indication: CEREBRAL INFARCTION
     Dosage: 75 MG (FREQUENCY: 1)
     Route: 048

REACTIONS (4)
  - Pneumonia [Not Recovered/Not Resolved]
  - Aspiration [Recovered/Resolved]
  - Central nervous system lymphoma [Fatal]
  - Disease progression [Fatal]

NARRATIVE: CASE EVENT DATE: 20190717
